FAERS Safety Report 11427630 (Version 3)
Quarter: 2015Q4

REPORT INFORMATION
  Report Type: Report from Study
  Country: US (occurrence: US)
  Receive Date: 20150828
  Receipt Date: 20151020
  Transmission Date: 20160304
  Serious: No
  Sender: FDA-Public Use
  Company Number: US-AMGEN-USASL2015085936

PATIENT
  Age: 55 Year
  Sex: Female

DRUGS (1)
  1. ENBREL [Suspect]
     Active Substance: ETANERCEPT
     Indication: RHEUMATOID ARTHRITIS
     Dosage: UNK
     Route: 065
     Dates: start: 20130903

REACTIONS (5)
  - Injection site pain [Unknown]
  - Device issue [Unknown]
  - Injection site erythema [Unknown]
  - Accidental exposure to product [Unknown]
  - Incorrect dose administered [Unknown]
